FAERS Safety Report 15339469 (Version 2)
Quarter: 2018Q3

REPORT INFORMATION
  Report Type: Report from Study
  Country: DE (occurrence: DE)
  Receive Date: 20180831
  Receipt Date: 20180906
  Transmission Date: 20181010
  Serious: Yes (Hospitalization)
  Sender: FDA-Public Use
  Company Number: PHHY2018DE072884

PATIENT
  Age: 78 Year
  Sex: Male
  Weight: 87 kg

DRUGS (3)
  1. ENTRESTO [Suspect]
     Active Substance: SACUBITRIL\VALSARTAN
     Indication: HYPOTENSION
     Dosage: 1 DF (49 MG SACUBITRIL, 51 MG VALSARTAN), QD
     Route: 048
     Dates: start: 20170727, end: 20180517
  2. ENTRESTO [Suspect]
     Active Substance: SACUBITRIL\VALSARTAN
     Dosage: UNK
     Route: 065
     Dates: start: 20170614
  3. ENTRESTO [Suspect]
     Active Substance: SACUBITRIL\VALSARTAN
     Dosage: UNK
     Route: 048
     Dates: start: 20180626

REACTIONS (5)
  - Feeling abnormal [Unknown]
  - Hypotension [Recovering/Resolving]
  - Abdominal pain upper [Recovered/Resolved]
  - Product use in unapproved indication [Unknown]
  - Nausea [Recovered/Resolved]

NARRATIVE: CASE EVENT DATE: 20180517
